FAERS Safety Report 13106574 (Version 5)
Quarter: 2017Q3

REPORT INFORMATION
  Report Type: Report from Study
  Country: US (occurrence: US)
  Receive Date: 20170111
  Receipt Date: 20170801
  Transmission Date: 20171127
  Serious: Yes (Hospitalization)
  Sender: FDA-Public Use
  Company Number: US-ACTELION-A-US2017-148034

PATIENT
  Age: 63 Year
  Sex: Male
  Weight: 72.56 kg

DRUGS (4)
  1. XARELTO [Concomitant]
     Active Substance: RIVAROXABAN
  2. REMODULIN [Concomitant]
     Active Substance: TREPROSTINIL
  3. TRACLEER [Suspect]
     Active Substance: BOSENTAN
     Indication: PULMONARY ARTERIAL HYPERTENSION
     Dosage: 125 MG, BID
     Route: 048
     Dates: start: 20101022
  4. WARFARIN [Concomitant]
     Active Substance: WARFARIN

REACTIONS (11)
  - Scrotal infection [Unknown]
  - Asthenia [Not Recovered/Not Resolved]
  - Cardiac failure congestive [Unknown]
  - Pulmonary hypertension [Unknown]
  - Debridement [Unknown]
  - Skin ulcer [Unknown]
  - Urinary tract infection [Unknown]
  - Fatigue [Not Recovered/Not Resolved]
  - Decubitus ulcer [Unknown]
  - Pneumonia [Unknown]
  - Pleural effusion [Unknown]
